FAERS Safety Report 18221091 (Version 1)
Quarter: 2020Q3

REPORT INFORMATION
  Report Type: Spontaneous
  Country: US (occurrence: US)
  Receive Date: 20200831
  Receipt Date: 20200831
  Transmission Date: 20201103
  Serious: No
  Sender: FDA-Public Use
  Company Number: None

PATIENT
  Age: 37 Year
  Sex: Male
  Weight: 97.07 kg

DRUGS (1)
  1. HALOPERIDOL (HALOPERIDOL 2MG TAB) [Suspect]
     Active Substance: HALOPERIDOL
     Indication: PSYCHOTIC DISORDER
     Dates: start: 20200512, end: 20200517

REACTIONS (8)
  - Tremor [None]
  - Extrapyramidal disorder [None]
  - Therapy cessation [None]
  - Tachycardia [None]
  - Pyrexia [None]
  - Musculoskeletal stiffness [None]
  - Dystonia [None]
  - Diarrhoea [None]

NARRATIVE: CASE EVENT DATE: 20200517
